FAERS Safety Report 7361353-8 (Version None)
Quarter: 2011Q1

REPORT INFORMATION
  Report Type: 
  Country: None (occurrence: None)
  Receive Date: 20110315
  Receipt Date: 20110315
  Transmission Date: 20110831
  Serious: Yes (Other)
  Sender: FDA-Public Use
  Company Number: None

PATIENT
  Sex: Female

DRUGS (2)
  1. FENTANYL [Suspect]
     Dosage: 25 MCG/HR 1 EVERY 3 DAYS TRANSDERMAL
     Route: 062
     Dates: start: 20110216
  2. FENTANYL [Suspect]
     Dosage: 25 MCG/HR 1 EVERY 3 DAYS TRANSDERMAL
     Route: 062
     Dates: start: 20110209

REACTIONS (3)
  - PRODUCT SUBSTITUTION ISSUE [None]
  - DIZZINESS [None]
  - GASTRIC DISORDER [None]
